FAERS Safety Report 4516318-8 (Version None)
Quarter: 2004Q4

REPORT INFORMATION
  Report Type: 
  Country: None (occurrence: None)
  Receive Date: 20041202
  Receipt Date: 20040405
  Transmission Date: 20050328
  Serious: No
  Sender: FDA-Public Use
  Company Number: US-GLAXOSMITHKLINE-A0505944A

PATIENT
  Age: 57 Year
  Sex: Female

DRUGS (2)
  1. AUGMENTIN '125' [Suspect]
     Indication: CELLULITIS
     Dosage: 875MG THREE TIMES PER DAY
     Route: 048
  2. AUGMENTIN '125' [Suspect]
     Route: 065

REACTIONS (1)
  - DRUG INEFFECTIVE [None]
